FAERS Safety Report 11778356 (Version 1)
Quarter: 2015Q4

REPORT INFORMATION
  Report Type: Report from Study
  Country: AR (occurrence: AR)
  Receive Date: 20151125
  Receipt Date: 20151125
  Transmission Date: 20160304
  Serious: Yes (Other)
  Sender: FDA-Public Use
  Company Number: AR-BAXALTA-2015BLT002826

PATIENT
  Age: 77 Year

DRUGS (5)
  1. RITUXIMAB [Concomitant]
     Active Substance: RITUXIMAB
     Indication: MICROSCOPIC POLYANGIITIS
     Dosage: UNK
     Route: 065
     Dates: start: 201012
  2. METHYLPREDNISOLONE. [Concomitant]
     Active Substance: METHYLPREDNISOLONE
     Indication: MICROSCOPIC POLYANGIITIS
     Dosage: UNK
     Route: 065
     Dates: start: 201012
  3. KIOVIG [Suspect]
     Active Substance: HUMAN IMMUNOGLOBULIN G
     Indication: IMMUNOGLOBULINS DECREASED
     Route: 042
  4. RITUXIMAB [Concomitant]
     Active Substance: RITUXIMAB
     Dosage: UNK
     Route: 065
     Dates: start: 201211
  5. CYCLOPHOSPHAMIDE ANHYDROUS. [Concomitant]
     Active Substance: CYCLOPHOSPHAMIDE ANHYDROUS
     Indication: MICROSCOPIC POLYANGIITIS
     Dosage: UNK
     Route: 065
     Dates: start: 201012

REACTIONS (2)
  - Renal impairment [Unknown]
  - Acute pulmonary oedema [Unknown]
